FAERS Safety Report 4976380-5 (Version None)
Quarter: 2006Q2

REPORT INFORMATION
  Report Type: 
  Country: None (occurrence: None)
  Receive Date: 20060412
  Receipt Date: 20060330
  Transmission Date: 20061013
  Serious: Yes (Other)
  Sender: FDA-Public Use
  Company Number: 2006044688

PATIENT
  Age: 55 Year
  Sex: Female

DRUGS (7)
  1. DETROL LA [Suspect]
     Indication: BLADDER PROLAPSE
     Dosage: 4 MG (4 MG, 1 IN 1 D), ORAL
     Route: 048
     Dates: start: 20051101
  2. DETROL LA [Suspect]
     Indication: MICTURITION URGENCY
     Dosage: 4 MG (4 MG, 1 IN 1 D), ORAL
     Route: 048
     Dates: start: 20051101
  3. TOPROL-XL [Concomitant]
  4. SYNTHROID [Concomitant]
  5. ACETYLSALIYCLIC ACID [Concomitant]
  6. MULTIVITAMIN [Concomitant]
  7. ZOCOR [Concomitant]

REACTIONS (3)
  - DRUG INEFFECTIVE [None]
  - HEADACHE [None]
  - MICTURITION URGENCY [None]
